FAERS Safety Report 5321483-9 (Version None)
Quarter: 2007Q2

REPORT INFORMATION
  Report Type: 
  Country: None (occurrence: None)
  Receive Date: 20070510
  Receipt Date: 20070502
  Transmission Date: 20071010
  Serious: Yes (Disabling)
  Sender: FDA-Public Use
  Company Number: JP-ASTRAZENECA-2007SE02432

PATIENT
  Age: 78 Year
  Sex: Female

DRUGS (2)
  1. BLOPRESS [Suspect]
     Indication: HYPERTENSION
     Route: 048
     Dates: start: 20050101, end: 20050429
  2. BLOPRESS [Suspect]
     Route: 048
     Dates: start: 20050430, end: 20050501

REACTIONS (1)
  - INTERSTITIAL LUNG DISEASE [None]
